FAERS Safety Report 9529597 (Version 1)
Quarter: 2013Q3

REPORT INFORMATION
  Report Type: Spontaneous
  Country: FR (occurrence: FR)
  Receive Date: 20130917
  Receipt Date: 20130917
  Transmission Date: 20140515
  Serious: Yes (Hospitalization)
  Sender: FDA-Public Use
  Company Number: FR-SANOFI-AVENTIS-2013SA090554

PATIENT
  Age: 48 Year
  Sex: Female

DRUGS (5)
  1. OXALIPLATIN [Suspect]
     Indication: METASTASES TO PERITONEUM
     Dosage: HIPEC VIA OPEN ABDOMEN TECHNIQUE AT 43 DEGREE CELSIUS
     Route: 033
     Dates: start: 2011, end: 2011
  2. ANTIBIOTICS [Concomitant]
  3. LEUCOVORIN [Concomitant]
     Route: 042
  4. FLUOROURACIL [Concomitant]
     Route: 042
  5. HEPARIN [Concomitant]
     Indication: PROPHYLAXIS

REACTIONS (15)
  - Histiocytosis haematophagic [Recovered/Resolved]
  - Off label use [Unknown]
  - Thrombocytopenia [Recovered/Resolved]
  - Pyrexia [Recovered/Resolved]
  - Splenomegaly [Recovered/Resolved]
  - Anaemia [Recovered/Resolved]
  - White blood cell count decreased [Recovered/Resolved]
  - Serum ferritin increased [Recovered/Resolved]
  - Blood fibrinogen decreased [Recovered/Resolved]
  - Fibrin degradation products increased [Recovered/Resolved]
  - Blood lactate dehydrogenase increased [Recovered/Resolved]
  - Hypotension [Recovered/Resolved]
  - Intra-abdominal haemorrhage [Recovered/Resolved]
  - Histiocytosis [Recovered/Resolved]
  - Abdominal sepsis [Recovered/Resolved]
